FAERS Safety Report 5993719-2 (Version None)
Quarter: 2008Q4

REPORT INFORMATION
  Report Type: 
  Country: None (occurrence: None)
  Receive Date: 20081212
  Receipt Date: 20081202
  Transmission Date: 20090506
  Serious: Yes (Hospitalization, Other)
  Sender: FDA-Public Use
  Company Number: US-AMGEN-QUU273148

PATIENT
  Sex: Female
  Weight: 81.7 kg

DRUGS (2)
  1. ENBREL [Suspect]
     Indication: RHEUMATOID ARTHRITIS
     Route: 058
     Dates: start: 20050801
  2. FEMARA [Concomitant]
     Dates: start: 20080401

REACTIONS (6)
  - ARTHRALGIA [None]
  - ATELECTASIS [None]
  - BREAST CANCER [None]
  - BREAST CANCER STAGE II [None]
  - JOINT STIFFNESS [None]
  - PULMONARY CONGESTION [None]
